FAERS Safety Report 11988340 (Version 1)
Quarter: 2016Q1

REPORT INFORMATION
  Report Type: Spontaneous
  Country: US (occurrence: US)
  Receive Date: 20160202
  Receipt Date: 20160202
  Transmission Date: 20160526
  Serious: Yes (Other)
  Sender: FDA-Public Use
  Company Number: US-BAYER-2016-018700

PATIENT
  Age: 90 Year
  Sex: Male
  Weight: 82.54 kg

DRUGS (5)
  1. VITAMIN D [Concomitant]
     Active Substance: CHOLECALCIFEROL
     Dosage: UNK
  2. CLARITIN [Suspect]
     Active Substance: LORATADINE
     Indication: SINUS DISORDER
     Dosage: 1 DF, ONCE
     Route: 048
     Dates: start: 20160126, end: 20160126
  3. BAYER LOW DOSE [Suspect]
     Active Substance: ASPIRIN
     Indication: ISCHAEMIC HEART DISEASE PROPHYLAXIS
     Dosage: UNK
  4. CLARITIN [Suspect]
     Active Substance: LORATADINE
     Indication: UPPER-AIRWAY COUGH SYNDROME
  5. CLARITIN [Suspect]
     Active Substance: LORATADINE
     Indication: NASAL DRYNESS

REACTIONS (4)
  - Product use issue [None]
  - Intentional product misuse [None]
  - Macular degeneration [None]
  - Fatigue [Recovered/Resolved]

NARRATIVE: CASE EVENT DATE: 20160126
